FAERS Safety Report 7204377-3 (Version None)
Quarter: 2010Q4

REPORT INFORMATION
  Report Type: 
  Country: None (occurrence: None)
  Receive Date: 20101220
  Receipt Date: 20101203
  Transmission Date: 20110411
  Serious: Yes (Other)
  Sender: FDA-Public Use
  Company Number: CIP10002948

PATIENT
  Age: 24 Year
  Sex: Female

DRUGS (1)
  1. ASACOL (MESALAMINE) UNKNOWN, UNKNOWN/MG [Suspect]
     Indication: COLITIS ULCERATIVE
     Dosage: 800 MG TWICE DAILY ,ORAL
     Route: 048

REACTIONS (2)
  - PULMONARY EOSINOPHILIA [None]
  - WEGENER'S GRANULOMATOSIS [None]
